FAERS Safety Report 7731994-4 (Version None)
Quarter: 2011Q3

REPORT INFORMATION
  Report Type: 
  Country: None (occurrence: None)
  Receive Date: 20110906
  Receipt Date: 20110721
  Transmission Date: 20111222
  Serious: No
  Sender: FDA-Public Use
  Company Number: US-AMGEN-USASP2011029842

PATIENT
  Age: 65 Year
  Sex: Female

DRUGS (3)
  1. ARIMIDEX [Concomitant]
  2. PROLIA [Suspect]
     Indication: OSTEOPOROSIS POSTMENOPAUSAL
     Dosage: 60 MG, Q6MO
     Dates: start: 20110323, end: 20110323
  3. ANTI-ESTROGENS [Concomitant]

REACTIONS (2)
  - URINARY TRACT INFECTION [None]
  - BACK PAIN [None]
